FAERS Safety Report 7374719-7 (Version None)
Quarter: 2011Q1

REPORT INFORMATION
  Report Type: 
  Country: None (occurrence: None)
  Receive Date: 20110325
  Receipt Date: 20100901
  Transmission Date: 20110831
  Serious: No
  Sender: FDA-Public Use
  Company Number: US-MYLANLABS-2010S1016188

PATIENT
  Age: 46 Year
  Sex: Female
  Weight: 61.24 kg

DRUGS (5)
  1. NEURONTIN [Concomitant]
  2. CYMBALTA [Concomitant]
  3. NORFLEX [Concomitant]
  4. FENTANYL-100 [Suspect]
     Indication: PAIN
     Dosage: CHANGED Q72H
     Route: 062
     Dates: start: 20100601
  5. ZANAFLEX [Concomitant]

REACTIONS (2)
  - APPLICATION SITE PAIN [None]
  - APPLICATION SITE RASH [None]
